FAERS Safety Report 23319506 (Version 1)
Quarter: 2023Q4

REPORT INFORMATION
  Report Type: Spontaneous
  Country: US (occurrence: US)
  Receive Date: 20231220
  Receipt Date: 20231220
  Transmission Date: 20240109
  Serious: No
  Sender: FDA-Public Use
  Company Number: US-GLAXOSMITHKLINE-US2023174597

PATIENT
  Sex: Female

DRUGS (1)
  1. ZEJULA [Suspect]
     Active Substance: NIRAPARIB
     Indication: Breast cancer female
     Dosage: 300 MG, QD
     Route: 048
     Dates: start: 20231117

REACTIONS (6)
  - Breast operation [Unknown]
  - Nausea [Unknown]
  - Dizziness [Unknown]
  - Lethargy [Unknown]
  - Brain fog [Unknown]
  - Blood pressure increased [Unknown]
